FAERS Safety Report 17942418 (Version 1)
Quarter: 2020Q2

REPORT INFORMATION
  Report Type: Spontaneous
  Country: CN (occurrence: CN)
  Receive Date: 20200624
  Receipt Date: 20200624
  Transmission Date: 20200714
  Serious: Yes (Death, Other)
  Sender: FDA-Public Use
  Company Number: NVSC2020CN055739

PATIENT
  Age: 40 Year
  Sex: Female

DRUGS (3)
  1. METHOTREXATE. [Suspect]
     Active Substance: METHOTREXATE
     Indication: ANGIOCENTRIC LYMPHOMA
     Dosage: 4800 MG (DRIP ON DAY 1)
     Route: 042
     Dates: start: 2015
  2. DEXAMETHASONE. [Suspect]
     Active Substance: DEXAMETHASONE
     Indication: ANGIOCENTRIC LYMPHOMA
     Dosage: 40 MG (DRIP FROM DAY 1 TO 4)
     Route: 042
     Dates: start: 2015
  3. PEGASPARGASE [Suspect]
     Active Substance: PEGASPARGASE
     Indication: ANGIOCENTRIC LYMPHOMA
     Dosage: 3750 IU (DRIP ON DAY 2)
     Route: 065
     Dates: start: 2015

REACTIONS (7)
  - Multiple organ dysfunction syndrome [Fatal]
  - Blood fibrinogen decreased [Unknown]
  - Neutrophil count decreased [Unknown]
  - Gastrointestinal haemorrhage [Unknown]
  - Platelet count [Unknown]
  - Respiratory tract infection [Unknown]
  - Bone marrow failure [Unknown]

NARRATIVE: CASE EVENT DATE: 2015
